FAERS Safety Report 25254687 (Version 1)
Quarter: 2025Q2

REPORT INFORMATION
  Report Type: Report from Study
  Country: US (occurrence: US)
  Receive Date: 20250430
  Receipt Date: 20250430
  Transmission Date: 20250717
  Serious: Yes (Hospitalization, Other)
  Sender: TAKEDA
  Company Number: US-TAKEDA-2024TUS113110

PATIENT
  Sex: Male

DRUGS (19)
  1. PONATINIB [Suspect]
     Active Substance: PONATINIB
     Indication: Acute lymphocytic leukaemia
     Dosage: 30 MILLIGRAM, QD
  2. PONATINIB [Suspect]
     Active Substance: PONATINIB
     Dosage: 30 MILLIGRAM, QD
  3. PONATINIB [Suspect]
     Active Substance: PONATINIB
     Dosage: 15 MILLIGRAM, QD
     Dates: end: 20250330
  4. ASPIRIN [Concomitant]
     Active Substance: ASPIRIN
  5. LIDOCAN [Concomitant]
     Active Substance: LIDOCAINE
  6. DIFLUCAN [Concomitant]
     Active Substance: FLUCONAZOLE
  7. PROCHLORPERAZINE MALEATE [Concomitant]
     Active Substance: PROCHLORPERAZINE MALEATE
  8. CLONAZEPAM [Concomitant]
     Active Substance: CLONAZEPAM
  9. LEVAQUIN [Concomitant]
     Active Substance: LEVOFLOXACIN
  10. CETIRIZINE HCL [Concomitant]
     Active Substance: CETIRIZINE HYDROCHLORIDE
  11. VALACYCLOVIR HYDROCHLORIDE [Concomitant]
     Active Substance: VALACYCLOVIR HYDROCHLORIDE
  12. NEXIUM [Concomitant]
     Active Substance: ESOMEPRAZOLE MAGNESIUM
  13. BACTRIM DS [Concomitant]
     Active Substance: SULFAMETHOXAZOLE\TRIMETHOPRIM
  14. VENLAFAXINE HCL [Concomitant]
     Active Substance: VENLAFAXINE HYDROCHLORIDE
  15. MAGNESIUM GLYCINATE [Concomitant]
     Active Substance: MAGNESIUM GLYCINATE
  16. PROPRANOLOL HYDROCHLORIDE [Concomitant]
     Active Substance: PROPRANOLOL HYDROCHLORIDE
  17. OXYCODONE [Concomitant]
     Active Substance: OXYCODONE
  18. ACETAMINOPHEN [Concomitant]
     Active Substance: ACETAMINOPHEN
  19. ELIQUIS [Concomitant]
     Active Substance: APIXABAN

REACTIONS (5)
  - Pulmonary thrombosis [Unknown]
  - Thrombosis [Unknown]
  - Pyrexia [Unknown]
  - Cardiac disorder [Unknown]
  - Speech disorder [Unknown]
